FAERS Safety Report 10265944 (Version 2)
Quarter: 2014Q4

REPORT INFORMATION
  Report Type: Spontaneous
  Country: US (occurrence: US)
  Receive Date: 20140627
  Receipt Date: 20141016
  Transmission Date: 20150528
  Serious: Yes (Other)
  Sender: FDA-Public Use
  Company Number: US-ELI_LILLY_AND_COMPANY-US201406007679

PATIENT
  Sex: Female
  Weight: 131.8 kg

DRUGS (13)
  1. NOVOLOG [Concomitant]
     Active Substance: INSULIN ASPART
  2. HUMULIN R [Concomitant]
     Active Substance: INSULIN HUMAN
  3. NORVASC [Concomitant]
     Active Substance: AMLODIPINE BESYLATE
  4. HUMULIN N [Suspect]
     Active Substance: INSULIN HUMAN
     Indication: DIABETES MELLITUS
     Dosage: UNK UNK, BID
     Route: 065
  5. OXYCODONE [Concomitant]
     Active Substance: OXYCODONE
  6. LISINOPRIL. [Concomitant]
     Active Substance: LISINOPRIL
  7. METOPROLOL [Concomitant]
     Active Substance: METOPROLOL
  8. ZOCOR [Concomitant]
     Active Substance: SIMVASTATIN
  9. BENADRYL [Concomitant]
     Active Substance: DIPHENHYDRAMINE HYDROCHLORIDE
  10. LASIX [Concomitant]
     Active Substance: FUROSEMIDE
  11. BABY ASPIRIN [Concomitant]
     Active Substance: ASPIRIN
     Dosage: UNK, EACH MORNING
  12. AMBIEN [Concomitant]
     Active Substance: ZOLPIDEM TARTRATE
  13. APIXABAN [Concomitant]
     Active Substance: APIXABAN
     Dosage: 2.5 DF, BID

REACTIONS (1)
  - Chronic kidney disease [Not Recovered/Not Resolved]

NARRATIVE: CASE EVENT DATE: 2005
